FAERS Safety Report 9280336 (Version 1)
Quarter: 2013Q1

REPORT INFORMATION
  Report Type: Spontaneous
  Country: GB (occurrence: None)
  Receive Date: 20130314
  Receipt Date: 20130314
  Transmission Date: 20140127
  Serious: Yes (Disabling, Other)
  Sender: FDA-Public Use
  Company Number: 2013-00782

PATIENT
  Age: 59 Year
  Sex: Female
  Weight: 76.2 kg

DRUGS (13)
  1. LOSARTAN (UNKNOWN) (LOSARTAN) [Suspect]
     Indication: PRODUCT USED FOR UNKNOWN INDICATION
  2. AMITRIPTYLINE (AMITRIPTYLINE HYDROCHLORIDE) [Concomitant]
  3. ASPIRIN [Concomitant]
  4. BISOPROLOL [Concomitant]
  5. GLYCERYL TRINITRATE [Concomitant]
  6. IBUPROFEN [Concomitant]
  7. OMEPRAZOLE [Concomitant]
  8. PARACETAMOL [Concomitant]
  9. RAMIPRIL (RAMIPRIL) [Concomitant]
  10. SIMVASTATIN (SIMVASTATIN) [Concomitant]
  11. TEMAZEPAM [Concomitant]
  12. AZD6140 (TICAGRELOR) [Concomitant]
  13. TRAMADOL [Concomitant]

REACTIONS (2)
  - Sneezing [None]
  - Cough [None]
